FAERS Safety Report 18642705 (Version 2)
Quarter: 2020Q4

REPORT INFORMATION
  Report Type: Spontaneous
  Country: IT (occurrence: IT)
  Receive Date: 20201221
  Receipt Date: 20201226
  Transmission Date: 20210114
  Serious: Yes (Other)
  Sender: FDA-Public Use
  Company Number: IT-AMGEN-ITANI2020206330

PATIENT
  Age: 65 Year
  Sex: Male

DRUGS (1)
  1. MVASI [Suspect]
     Active Substance: BEVACIZUMAB-AWWB
     Indication: MACULAR DEGENERATION
     Dosage: 0.5 MICROGRAM, CYCLICAL
     Route: 065
     Dates: start: 20200729

REACTIONS (3)
  - Condition aggravated [Unknown]
  - Macular oedema [Unknown]
  - Visual impairment [Unknown]

NARRATIVE: CASE EVENT DATE: 20201203
